FAERS Safety Report 6834934-5 (Version None)
Quarter: 2010Q3

REPORT INFORMATION
  Report Type: 
  Country: None (occurrence: None)
  Receive Date: 20100712
  Receipt Date: 20070421
  Transmission Date: 20110219
  Serious: Yes (Other)
  Sender: FDA-Public Use
  Company Number: US-PFIZER INC-2007022644

PATIENT
  Sex: Male

DRUGS (4)
  1. CHANTIX [Suspect]
     Indication: SMOKING CESSATION THERAPY
     Dates: start: 20070117
  2. DEPAKOTE [Concomitant]
  3. RISPERDAL [Concomitant]
  4. WELLBUTRIN [Concomitant]

REACTIONS (1)
  - DEPRESSION [None]
